FAERS Safety Report 7597095-3 (Version None)
Quarter: 2011Q3

REPORT INFORMATION
  Report Type: 
  Country: None (occurrence: None)
  Receive Date: 20110708
  Receipt Date: 20110629
  Transmission Date: 20111222
  Serious: Yes (Other)
  Sender: FDA-Public Use
  Company Number: BR-PFIZER INC-2010093019

PATIENT
  Age: 48 Year
  Sex: Male
  Weight: 162 kg

DRUGS (4)
  1. XALATAN [Suspect]
     Indication: GLAUCOMA
     Dosage: UNK, 1X/DAY
     Route: 047
     Dates: start: 20000801
  2. CLONAZEPAM [Concomitant]
     Indication: ANXIETY
     Dosage: UNK
     Dates: start: 19900101
  3. XALATAN [Suspect]
     Indication: HYPERSENSITIVITY
  4. TIMOLOL [Suspect]

REACTIONS (5)
  - HYPOTENSION [None]
  - BRADYCARDIA [None]
  - INTRAOCULAR PRESSURE TEST ABNORMAL [None]
  - SCOTOMA [None]
  - DYSPNOEA [None]
